FAERS Safety Report 10253846 (Version 1)
Quarter: 2014Q2

REPORT INFORMATION
  Report Type: Spontaneous
  Country: US (occurrence: US)
  Receive Date: 20140623
  Receipt Date: 20140623
  Transmission Date: 20141212
  Serious: No
  Sender: FDA-Public Use
  Company Number: US-ZOGENIX, INC.-2011ZX000577

PATIENT
  Sex: Female
  Weight: 58.57 kg

DRUGS (4)
  1. SUMAVEL DOSEPRO [Suspect]
     Indication: CLUSTER HEADACHE
  2. SUMATRIPTAN [Concomitant]
     Indication: CLUSTER HEADACHE
     Route: 048
  3. ETODOLAC [Concomitant]
     Indication: CLUSTER HEADACHE
  4. LIDOCAINE [Concomitant]
     Indication: CLUSTER HEADACHE

REACTIONS (5)
  - Injection site bruising [Recovered/Resolved]
  - Injection site urticaria [Recovered/Resolved]
  - Discomfort [Recovered/Resolved]
  - Dyspnoea [Recovered/Resolved]
  - Drug effect incomplete [Recovered/Resolved]
